FAERS Safety Report 5665016-6 (Version None)
Quarter: 2008Q1

REPORT INFORMATION
  Report Type: 
  Country: None (occurrence: None)
  Receive Date: 20080314
  Receipt Date: 20080303
  Transmission Date: 20080703
  Serious: Yes (Other)
  Sender: FDA-Public Use
  Company Number: US-PFIZER INC-2008020564

PATIENT
  Sex: Female
  Weight: 68 kg

DRUGS (7)
  1. LYRICA [Suspect]
     Indication: FIBROMYALGIA
     Dates: start: 20061201, end: 20070701
  2. SPIRIVA [Concomitant]
  3. POTASSIUM CHLORIDE [Concomitant]
  4. DIURETICS [Concomitant]
  5. VALIUM [Concomitant]
  6. LORTAB [Concomitant]
  7. SOMA [Concomitant]

REACTIONS (4)
  - BALANCE DISORDER [None]
  - DIZZINESS [None]
  - FALL [None]
  - IMPAIRED DRIVING ABILITY [None]
